FAERS Safety Report 25054194 (Version 3)
Quarter: 2025Q1

REPORT INFORMATION
  Report Type: Spontaneous
  Country: US (occurrence: US)
  Receive Date: 20250307
  Receipt Date: 20250327
  Transmission Date: 20250409
  Serious: No
  Sender: SANOFI AVENTIS
  Company Number: US-SA-2025SA066201

PATIENT
  Age: 67 Year
  Sex: Female

DRUGS (1)
  1. DUPIXENT [Suspect]
     Active Substance: DUPILUMAB
     Indication: Chronic obstructive pulmonary disease
     Dosage: 300MG, QOW
     Route: 058

REACTIONS (5)
  - Diarrhoea [Unknown]
  - Influenza like illness [Unknown]
  - Dyspnoea [Unknown]
  - Conjunctivitis [Unknown]
  - Adverse drug reaction [Unknown]
